FAERS Safety Report 5965650-X (Version None)
Quarter: 2008Q4

REPORT INFORMATION
  Report Type: 
  Country: None (occurrence: None)
  Receive Date: 20081121
  Receipt Date: 20071105
  Transmission Date: 20090506
  Serious: Yes (Other)
  Sender: FDA-Public Use
  Company Number: 530087

PATIENT
  Age: 7 Year
  Sex: Male

DRUGS (5)
  1. CELLCEPT [Suspect]
     Indication: HEART TRANSPLANT
     Dosage: 3 ML 2 PER DAY ORAL
     Route: 048
  2. CYCLOSPORINE [Concomitant]
  3. CALCIFEROL (ERGOCALCIFEROL) [Concomitant]
  4. BACTRIM [Concomitant]
  5. PENTASA [Concomitant]

REACTIONS (1)
  - TRANSPLANT REJECTION [None]
